FAERS Safety Report 6334476-X (Version None)
Quarter: 2009Q3

REPORT INFORMATION
  Report Type: 
  Country: None (occurrence: None)
  Receive Date: 20090831
  Receipt Date: 20090818
  Transmission Date: 20100115
  Serious: Yes (Death)
  Sender: FDA-Public Use
  Company Number: JP-ALLERGAN-0911799US

PATIENT
  Sex: Female

DRUGS (6)
  1. BOTOX [Suspect]
     Indication: FACIAL SPASM
     Dosage: 8.75 UNITS, SINGLE
     Route: 030
     Dates: start: 20060322, end: 20060322
  2. BOTOX [Suspect]
     Dosage: 11.25 UNITS, SINGLE
     Route: 030
     Dates: start: 20031114, end: 20031114
  3. BOTOX [Suspect]
     Dosage: 10 UNITS, SINGLE
     Route: 030
     Dates: start: 20040405, end: 20040405
  4. BOTOX [Suspect]
     Dosage: 10 UNITS, SINGLE
     Route: 030
     Dates: start: 20041027, end: 20041027
  5. BOTOX [Suspect]
     Dosage: 11.25 UNITS, SINGLE
     Route: 030
     Dates: start: 20050411, end: 20050411
  6. BOTOX [Suspect]
     Dosage: 11.25 UNITS, SINGLE
     Route: 030
     Dates: start: 20050905, end: 20050905

REACTIONS (1)
  - DEATH [None]
